FAERS Safety Report 6986171-1 (Version None)
Quarter: 2010Q3

REPORT INFORMATION
  Report Type: 
  Country: None (occurrence: None)
  Receive Date: 20100915
  Receipt Date: 20090604
  Transmission Date: 20110219
  Serious: No
  Sender: FDA-Public Use
  Company Number: US-WYE-H09627909

PATIENT
  Sex: Female
  Weight: 73.55 kg

DRUGS (8)
  1. PRISTIQ [Suspect]
     Indication: DEPRESSION
     Dosage: 50 MG EVERY 1 TOT
     Route: 048
     Dates: start: 20090603, end: 20090603
  2. NEURONTIN [Concomitant]
  3. COREG [Concomitant]
  4. PHENERGAN [Concomitant]
  5. PRILOSEC [Concomitant]
  6. APRESOLINE [Concomitant]
  7. ZYVOX [Concomitant]
  8. REGLAN [Concomitant]

REACTIONS (1)
  - VOMITING [None]
